FAERS Safety Report 20330379 (Version 1)
Quarter: 2022Q1

REPORT INFORMATION
  Report Type: Report from Study
  Country: GB (occurrence: GB)
  Receive Date: 20220113
  Receipt Date: 20220113
  Transmission Date: 20220423
  Serious: Yes (Hospitalization, Other)
  Sender: FDA-Public Use
  Company Number: GB-LEO Pharma-340522

PATIENT
  Age: 43 Year
  Sex: Male
  Weight: 85 kg

DRUGS (6)
  1. BRODALUMAB [Suspect]
     Active Substance: BRODALUMAB
     Indication: Psoriasis
     Dosage: 210 MG WEEK 0,1 AND 2 THEN EVERY TWO WEEKS
     Route: 058
     Dates: start: 20210601, end: 20210930
  2. ELOCON [Concomitant]
     Active Substance: MOMETASONE FUROATE
     Indication: Product used for unknown indication
     Dates: start: 20210908
  3. COVID-19 VACCINE (OXFORD/ASTRAZENECA) [Concomitant]
     Indication: Product used for unknown indication
     Dates: start: 20210318, end: 20210318
  4. COVID-19 VACCINE (OXFORD/ASTRAZENECA) [Concomitant]
     Dates: start: 20210529, end: 20210529
  5. COVID-19 VACCINE (OXFORD/ASTRAZENECA) [Concomitant]
     Dates: start: 20211222, end: 20211222
  6. CODEINE [Concomitant]
     Active Substance: CODEINE
     Indication: Product used for unknown indication
     Dates: start: 20210826

REACTIONS (3)
  - Joint effusion [Not Recovered/Not Resolved]
  - Joint swelling [Unknown]
  - Peripheral swelling [Unknown]

NARRATIVE: CASE EVENT DATE: 20211016
